FAERS Safety Report 9145804 (Version 2)
Quarter: 2013Q2

REPORT INFORMATION
  Report Type: Report from Study
  Country: US (occurrence: US)
  Receive Date: 20130307
  Receipt Date: 20130520
  Transmission Date: 20140414
  Serious: Yes (Hospitalization)
  Sender: FDA-Public Use
  Company Number: PHEH2013US005326

PATIENT
  Age: 76 Year
  Sex: Male
  Weight: 68.27 kg

DRUGS (11)
  1. EXJADE [Suspect]
     Indication: CHRONIC LYMPHOCYTIC LEUKAEMIA
     Dosage: 2 DF, ONCE A DAY
     Route: 048
     Dates: start: 20121220, end: 20130110
  2. IODOSORB [Concomitant]
     Dosage: UNK, PRN, EVERY 4 HOURS
  3. OXYGEN [Concomitant]
  4. DUONEB [Concomitant]
     Dosage: 3 ML, UNK
  5. ATORVASTATIN [Concomitant]
     Dosage: 1 DF, A DAY
  6. LISINOPRIL [Concomitant]
     Dosage: 2.5 MG, DAILY
  7. COREG [Concomitant]
     Dosage: 6.25 MG, TWICE A DAY
  8. ASPIRINE [Concomitant]
     Dosage: 1 DF, DAILY
     Route: 048
  9. LIPITOR [Concomitant]
     Dosage: 40 MG, DAILY
  10. COUMADINE [Concomitant]
     Dosage: 5 MG, DAILY (EXCEPT TUESDAYS AND THRSDAY)
     Route: 048
  11. LEVAQUIN [Concomitant]
     Dosage: 750 MG, DAILY

REACTIONS (44)
  - Myocardial infarction [Unknown]
  - Viral infection [Recovering/Resolving]
  - Pyrexia [Recovered/Resolved]
  - Septic shock [Unknown]
  - Coronary artery occlusion [Unknown]
  - Atrial fibrillation [Unknown]
  - Malaise [Unknown]
  - Cough [Recovered/Resolved]
  - Productive cough [Unknown]
  - Abdominal pain upper [Unknown]
  - Anxiety [Not Recovered/Not Resolved]
  - Nausea [Unknown]
  - Asthenia [Unknown]
  - Heart rate increased [Unknown]
  - Blood pressure systolic increased [Unknown]
  - Tachycardia [Unknown]
  - Breath sounds abnormal [Unknown]
  - Blood urea increased [Unknown]
  - Blood albumin decreased [Unknown]
  - Blood calcium decreased [Unknown]
  - Blood lactic acid decreased [Unknown]
  - Lipase increased [Unknown]
  - Pleural effusion [Unknown]
  - Hypotension [Recovered/Resolved]
  - Influenza [Unknown]
  - Gastrooesophageal reflux disease [Unknown]
  - Blood bicarbonate increased [Unknown]
  - Skin discolouration [Unknown]
  - Osteomyelitis chronic [Unknown]
  - Vitamin B12 deficiency [Unknown]
  - Dyspnoea [Not Recovered/Not Resolved]
  - Musculoskeletal discomfort [Unknown]
  - Limb discomfort [Unknown]
  - Gait disturbance [Unknown]
  - Urinary tract infection [Unknown]
  - Urinary tract infection fungal [Unknown]
  - Dehydration [Unknown]
  - Renal failure acute [Recovering/Resolving]
  - Thrombocytopenia [Unknown]
  - Blood creatinine increased [Unknown]
  - Platelet count decreased [Unknown]
  - Haemoglobin decreased [Unknown]
  - Oedema peripheral [Unknown]
  - Poor quality sleep [Unknown]
